FAERS Safety Report 21723446 (Version 1)
Quarter: 2022Q4

REPORT INFORMATION
  Report Type: Spontaneous
  Country: FR (occurrence: FR)
  Receive Date: 20221213
  Receipt Date: 20221213
  Transmission Date: 20230113
  Serious: Yes (Life-Threatening)
  Sender: FDA-Public Use
  Company Number: None

PATIENT
  Age: 68 Year
  Sex: Male
  Weight: 85 kg

DRUGS (4)
  1. MEROPENEM [Suspect]
     Active Substance: MEROPENEM
     Indication: Osteitis
     Dosage: 2 G, 3X/DAY
     Route: 042
     Dates: start: 20220915, end: 20221004
  2. LINEZOLID [Suspect]
     Active Substance: LINEZOLID
     Indication: Osteitis
     Dosage: 600 MG, 2X/DAY
     Route: 048
     Dates: start: 20220908, end: 20220930
  3. LOVENOX [Concomitant]
     Active Substance: ENOXAPARIN SODIUM
     Indication: Thrombosis prophylaxis
     Dosage: 4000 IU, 1X/DAY
     Route: 058
     Dates: start: 20220908, end: 20221024
  4. PIPERACILLIN SODIUM\TAZOBACTAM SODIUM [Concomitant]
     Active Substance: PIPERACILLIN SODIUM\TAZOBACTAM SODIUM
     Indication: Osteitis
     Dosage: 1 G, 3X/DAY
     Route: 042
     Dates: start: 20220908, end: 20220914

REACTIONS (2)
  - Thrombocytopenia [Recovered/Resolved]
  - Off label use [Unknown]

NARRATIVE: CASE EVENT DATE: 20220908
